FAERS Safety Report 8374987-9 (Version None)
Quarter: 2012Q2

REPORT INFORMATION
  Report Type: 
  Country: None (occurrence: None)
  Receive Date: 20120521
  Receipt Date: 20120511
  Transmission Date: 20120825
  Serious: Yes (Other)
  Sender: FDA-Public Use
  Company Number: ES-ABBOTT-12P-144-0932654-00

PATIENT
  Sex: Male
  Weight: 75 kg

DRUGS (4)
  1. HUMIRA [Suspect]
     Indication: CROHN'S DISEASE
     Dosage: INDUCTION DOSE
     Route: 058
     Dates: start: 20110311, end: 20110311
  2. HUMIRA [Suspect]
     Dosage: INDUCTION DOSE
     Route: 058
     Dates: start: 20110326, end: 20110326
  3. HUMIRA [Suspect]
     Route: 058
     Dates: start: 20110410, end: 20111202
  4. AZATHIOPRINE [Suspect]
     Indication: CROHN'S DISEASE
     Dosage: 150 MG DAILY
     Dates: start: 20100901, end: 20111201

REACTIONS (7)
  - IMMUNOSUPPRESSION [None]
  - BRAIN INJURY [None]
  - CD4 LYMPHOCYTES DECREASED [None]
  - DIFFUSE LARGE B-CELL LYMPHOMA [None]
  - ENCEPHALITIS VIRAL [None]
  - EPSTEIN-BARR VIRUS INFECTION [None]
  - ASTHENIA [None]
